FAERS Safety Report 4511260-0 (Version None)
Quarter: 2004Q4

REPORT INFORMATION
  Report Type: 
  Country: None (occurrence: None)
  Receive Date: 20041122
  Receipt Date: 20021126
  Transmission Date: 20050328
  Serious: Yes (Death)
  Sender: FDA-Public Use
  Company Number: 2004BL007421

PATIENT
  Age: 58 Year
  Sex: Male

DRUGS (4)
  1. MINIMS    PREDNISOLONE SODIUM  PHOSPHATE [Suspect]
     Dosage: OPHTHALMIC
     Route: 047
  2. CYCLOSPORINE [Concomitant]
  3. AZATHIOPRINE [Concomitant]
  4. METHOTREXATE [Concomitant]

REACTIONS (4)
  - ASTROCYTOMA [None]
  - GINGIVAL HYPERTROPHY [None]
  - HYPERTENSION [None]
  - OEDEMA [None]
